FAERS Safety Report 12468843 (Version 1)
Quarter: 2016Q2

REPORT INFORMATION
  Report Type: Spontaneous
  Country: DK (occurrence: DK)
  Receive Date: 20160615
  Receipt Date: 20160615
  Transmission Date: 20160815
  Serious: Yes (Other)
  Sender: FDA-Public Use
  Company Number: DK-WATSON-2016-11929

PATIENT
  Age: 63 Year
  Sex: Male
  Weight: 84 kg

DRUGS (3)
  1. IMDUR [Concomitant]
     Active Substance: ISOSORBIDE MONONITRATE
     Indication: ANGINA PECTORIS
     Dosage: UNK
     Route: 048
     Dates: start: 201502
  2. MAREVAN [Concomitant]
     Active Substance: WARFARIN SODIUM
     Indication: EMBOLISM
     Dosage: UNK
     Route: 065
     Dates: start: 201301
  3. SIMVASTATIN ACTAVIS [Suspect]
     Active Substance: SIMVASTATIN
     Indication: BLOOD CHOLESTEROL
     Dosage: 1 DF, DAILY
     Route: 048
     Dates: start: 201305, end: 201506

REACTIONS (1)
  - Psoriasis [Recovering/Resolving]

NARRATIVE: CASE EVENT DATE: 201402
